FAERS Safety Report 24788448 (Version 1)
Quarter: 2024Q4

REPORT INFORMATION
  Report Type: Spontaneous
  Country: GB (occurrence: GB)
  Receive Date: 20241230
  Receipt Date: 20241230
  Transmission Date: 20250114
  Serious: Yes (Other)
  Sender: AUROBINDO
  Company Number: GB-MHRA-MED-202412160826577760-NGMTZ

PATIENT
  Sex: Female

DRUGS (2)
  1. FLUOXETINE [Suspect]
     Active Substance: FLUOXETINE HYDROCHLORIDE
     Indication: Product used for unknown indication
     Dosage: UNK
     Route: 065
  2. MAGNESIUM [Concomitant]
     Active Substance: MAGNESIUM
     Indication: Adverse drug reaction
     Dosage: UNK
     Route: 065

REACTIONS (8)
  - Loss of libido [Not Recovered/Not Resolved]
  - Energy increased [Not Recovered/Not Resolved]
  - Nightmare [Unknown]
  - Insomnia [Unknown]
  - Weight decreased [Unknown]
  - Night sweats [Recovered/Resolved]
  - Mania [Unknown]
  - Alcohol interaction [Not Recovered/Not Resolved]
